FAERS Safety Report 4923205-X (Version None)
Quarter: 2006Q1

REPORT INFORMATION
  Report Type: 
  Country: None (occurrence: None)
  Receive Date: 20060127
  Receipt Date: 20051005
  Transmission Date: 20060701
  Serious: Yes (Other)
  Sender: FDA-Public Use
  Company Number: 2005139327

PATIENT
  Sex: Female

DRUGS (1)
  1. PREGABALIN (PREGABALIN) [Suspect]
     Indication: ILL-DEFINED DISORDER
     Dates: start: 20051003, end: 20051004

REACTIONS (1)
  - FEELING ABNORMAL [None]
